FAERS Safety Report 23747738 (Version 2)
Quarter: 2024Q2

REPORT INFORMATION
  Report Type: Report from Study
  Country: FR (occurrence: FR)
  Receive Date: 20240416
  Receipt Date: 20240527
  Transmission Date: 20240717
  Serious: Yes (Death, Other)
  Sender: FDA-Public Use
  Company Number: None

PATIENT
  Age: 77 Year
  Sex: Female
  Weight: 73 kg

DRUGS (6)
  1. DUPILUMAB [Suspect]
     Active Substance: DUPILUMAB
     Indication: Neurodermatitis
     Dosage: 600 MG, 1X
     Route: 058
     Dates: start: 20230301, end: 20230301
  2. DUPILUMAB [Suspect]
     Active Substance: DUPILUMAB
     Dosage: 300 MG, QOW
     Route: 058
     Dates: start: 202303, end: 20240318
  3. JARDIANCE [Suspect]
     Active Substance: EMPAGLIFLOZIN
     Indication: Cardiac failure
     Dosage: 10 MG, QD
     Route: 048
     Dates: start: 20231229
  4. JARDIANCE [Suspect]
     Active Substance: EMPAGLIFLOZIN
     Indication: Cardiac valve disease
  5. BETAMETHASONE [Concomitant]
     Active Substance: BETAMETHASONE\BETAMETHASONE DIPROPIONATE
     Indication: Neurodermatitis
     Dosage: 3 DF, QD
     Dates: start: 202302
  6. DESONIDE [Concomitant]
     Active Substance: DESONIDE
     Indication: Neurodermatitis
     Dosage: 1 DF, QD
     Dates: start: 202302

REACTIONS (7)
  - Escherichia sepsis [Fatal]
  - Urosepsis [Fatal]
  - Escherichia bacteraemia [Fatal]
  - Cardio-respiratory arrest [Fatal]
  - Acute coronary syndrome [Unknown]
  - Cardiac failure [Unknown]
  - Hypervolaemia [Unknown]

NARRATIVE: CASE EVENT DATE: 20240108
